FAERS Safety Report 7062218-1 (Version None)
Quarter: 2010Q4

REPORT INFORMATION
  Report Type: 
  Country: None (occurrence: None)
  Receive Date: 20101026
  Receipt Date: 20101019
  Transmission Date: 20110411
  Serious: No
  Sender: FDA-Public Use
  Company Number: US-B.I. PHARMACEUTICALS,INC./RIDGEFIELD-2010-BP-11776BP

PATIENT
  Sex: Female

DRUGS (2)
  1. SPIRIVA [Suspect]
     Indication: CHRONIC OBSTRUCTIVE PULMONARY DISEASE
     Dosage: 18 MCG
     Route: 055
     Dates: start: 20070101
  2. NASONEX [Concomitant]
     Indication: RHINORRHOEA

REACTIONS (9)
  - CONSTIPATION [None]
  - COUGH [None]
  - DRY MOUTH [None]
  - DYSPEPSIA [None]
  - PNEUMONIA [None]
  - RESTLESS LEGS SYNDROME [None]
  - RESTLESSNESS [None]
  - URINARY TRACT INFECTION [None]
  - VISION BLURRED [None]
